FAERS Safety Report 18415548 (Version 3)
Quarter: 2022Q1

REPORT INFORMATION
  Report Type: Report from Study
  Country: US (occurrence: US)
  Receive Date: 20201022
  Receipt Date: 20220107
  Transmission Date: 20220423
  Serious: No
  Sender: FDA-Public Use
  Company Number: None

PATIENT
  Age: 77 Year
  Sex: Female

DRUGS (2)
  1. TABRECTA [Suspect]
     Active Substance: CAPMATINIB
     Indication: Lung carcinoma cell type unspecified stage 0
     Dosage: 400 MG, BID
     Route: 048
     Dates: start: 20201012
  2. TABRECTA [Suspect]
     Active Substance: CAPMATINIB
     Indication: Non-small cell lung cancer stage 0
     Dosage: 400 MG, ONCE2SDO
     Route: 048
     Dates: start: 20211001

REACTIONS (4)
  - Anxiety disorder [Unknown]
  - Product physical issue [Unknown]
  - Lymphoedema [Unknown]
  - Nausea [Unknown]

NARRATIVE: CASE EVENT DATE: 20211105
